FAERS Safety Report 7776865-2 (Version None)
Quarter: 2011Q3

REPORT INFORMATION
  Report Type: 
  Country: None (occurrence: None)
  Receive Date: 20110926
  Receipt Date: 20110906
  Transmission Date: 20111222
  Serious: Yes (Other)
  Sender: FDA-Public Use
  Company Number: US-BAYER-2011-083395

PATIENT
  Age: 72 Year
  Sex: Female
  Weight: 160 kg

DRUGS (4)
  1. PROTONIX [Concomitant]
  2. SPIRONOLACTONE [Concomitant]
  3. ASPIRIN [Suspect]
     Indication: ISCHAEMIC HEART DISEASE PROPHYLAXIS
     Dosage: 1 DF, QD
     Route: 048
     Dates: start: 20101201
  4. ADVAIR DISKUS 100/50 [Concomitant]

REACTIONS (2)
  - TINNITUS [None]
  - DEAFNESS [None]
